FAERS Safety Report 9080573 (Version 1)
Quarter: 2013Q1

REPORT INFORMATION
  Report Type: Spontaneous
  Country: US (occurrence: US)
  Receive Date: 20130131
  Receipt Date: 20130131
  Transmission Date: 20140127
  Serious: Yes (Other)
  Sender: FDA-Public Use
  Company Number: US-AMGEN-USASP2013002448

PATIENT
  Age: 64 Year
  Sex: Male
  Weight: 84.58 kg

DRUGS (21)
  1. ENBREL [Suspect]
     Indication: RHEUMATOID ARTHRITIS
     Dosage: 50 MG, QWK
     Route: 058
     Dates: start: 20120907
  2. ARAVA [Concomitant]
     Dosage: 20 MG, QD 1 TAB
  3. VOLTAREN                           /00372301/ [Concomitant]
     Dosage: FOR UPPER EXTREMITY 1 % GEL 2 G FOR UPPER BODY, QID PRN PAIN
  4. PREDNISONE [Concomitant]
     Dosage: 10 MG, 1 TAB PRN
  5. VICODIN [Concomitant]
     Dosage: 5MG/500MG TABLET 1 TAB(S) BID PRN PAIN
  6. PLAVIX [Concomitant]
     Dosage: 75 MG, QD
  7. ASPIRIN [Concomitant]
     Dosage: 325 MG, QD
  8. WELLBUTRIN [Concomitant]
     Dosage: UNK, QD 2 TAB
  9. VITAMIN D /00107901/ [Concomitant]
     Dosage: 1,000 1 U 4 TAB ONCE A DAY
  10. RANEXA [Concomitant]
     Dosage: 500 MG, EXTENDED RELEASE 1 TAB TWICE A DAY
  11. AMBIEN [Concomitant]
     Dosage: 05 MG, 1-2 TABS QHS
  12. ZOCOR [Concomitant]
     Dosage: 20 MG,  1 TAB QHS
  13. FLOMAX                             /00889901/ [Concomitant]
     Dosage: 0.4 MG, 1 TAB QD
  14. SYNTHROID [Concomitant]
     Dosage: 75 MUG, QD
  15. TOPROL [Concomitant]
     Dosage: 100 MG, EXTENDED RELEASE 1 TAB BID
  16. PAXIL [Concomitant]
     Dosage: 10 MG, UNK
  17. MULTIVITAMINS, PLAIN [Concomitant]
     Dosage: UNK
  18. NORTRIPTYLINE [Concomitant]
     Dosage: 25 MG, QD
  19. FISH OIL [Concomitant]
     Dosage: 1000 MG, QD
  20. NORVASC [Concomitant]
     Dosage: UNK, QHS
  21. KENALOG [Concomitant]
     Dosage: 40 MG, UNK

REACTIONS (3)
  - Peripheral sensory neuropathy [Unknown]
  - Neuropathy peripheral [Not Recovered/Not Resolved]
  - Demyelinating polyneuropathy [Unknown]
